FAERS Safety Report 9884449 (Version 1)
Quarter: 2014Q1

REPORT INFORMATION
  Report Type: Spontaneous
  Country: US (occurrence: None)
  Receive Date: 20140207
  Receipt Date: 20140207
  Transmission Date: 20141002
  Serious: Yes (Other)
  Sender: FDA-Public Use
  Company Number: None

PATIENT
  Age: 53 Year
  Sex: Female
  Weight: 49.9 kg

DRUGS (2)
  1. TACROLIMUS [Suspect]
     Indication: LUNG TRANSPLANT
     Route: 048
     Dates: start: 20131001, end: 20140206
  2. TACROLIMUS [Suspect]
     Indication: RENAL TRANSPLANT
     Route: 048
     Dates: start: 20131001, end: 20140206

REACTIONS (2)
  - Renal transplant [None]
  - Pruritus [None]
